FAERS Safety Report 14400994 (Version 1)
Quarter: 2018Q1

REPORT INFORMATION
  Report Type: Spontaneous
  Country: US (occurrence: US)
  Receive Date: 20180113
  Receipt Date: 20180113
  Transmission Date: 20180509
  Serious: Yes (Hospitalization)
  Sender: FDA-Public Use
  Company Number: None

PATIENT
  Age: 2 Year
  Sex: Male
  Weight: 8.4 kg

DRUGS (4)
  1. 5-FLUOROURACIL (5-FU) [Suspect]
     Active Substance: FLUOROURACIL
     Dates: end: 20171212
  2. VINCRISTINE SULFATE. [Suspect]
     Active Substance: VINCRISTINE SULFATE
     Dates: end: 20171226
  3. DOXORUBICIN HYDROCHLORIDE. [Suspect]
     Active Substance: DOXORUBICIN HYDROCHLORIDE
     Dates: end: 20171212
  4. CISPLATIN. [Suspect]
     Active Substance: CISPLATIN
     Dates: end: 20171211

REACTIONS (7)
  - Asthenia [None]
  - Blood creatinine increased [None]
  - Chills [None]
  - Laboratory test abnormal [None]
  - Blood sodium increased [None]
  - Dehydration [None]
  - Pallor [None]

NARRATIVE: CASE EVENT DATE: 20171231
